FAERS Safety Report 9126636 (Version 2)
Quarter: 2013Q1

REPORT INFORMATION
  Report Type: Spontaneous
  Country: PH (occurrence: PH)
  Receive Date: 20130228
  Receipt Date: 20130306
  Transmission Date: 20140127
  Serious: Yes (Death, Other)
  Sender: FDA-Public Use
  Company Number: PH-009507513-1302PHL013097

PATIENT
  Age: 90 Year
  Sex: Female

DRUGS (4)
  1. JANUVIA [Suspect]
     Indication: DIABETES MELLITUS
     Dosage: 1 DF, QD
  2. LOSARTAN POTASSIUM [Concomitant]
  3. RESTENIL [Concomitant]
  4. COMBIZAR [Concomitant]

REACTIONS (2)
  - Cardiac arrest [Fatal]
  - Arrhythmia [Fatal]
